FAERS Safety Report 20835756 (Version 4)
Quarter: 2023Q2

REPORT INFORMATION
  Report Type: Spontaneous
  Country: US (occurrence: US)
  Receive Date: 20220516
  Receipt Date: 20230609
  Transmission Date: 20230722
  Serious: No
  Sender: FDA-Public Use
  Company Number: US-PFIZER INC-202200458259

PATIENT
  Age: 25 Year
  Sex: Female

DRUGS (1)
  1. XELJANZ XR [Suspect]
     Active Substance: TOFACITINIB CITRATE
     Dosage: 22 MG
     Dates: end: 202108

REACTIONS (5)
  - Diarrhoea [Unknown]
  - Disease recurrence [Unknown]
  - Weight decreased [Unknown]
  - Illness [Unknown]
  - Pain [Unknown]
